FAERS Safety Report 8883179 (Version 1)
Quarter: 2012Q4

REPORT INFORMATION
  Report Type: 
  Country: US (occurrence: US)
  Receive Date: 20121102
  Receipt Date: 20121102
  Transmission Date: 20130627
  Serious: Yes (Other)
  Sender: FDA-Public Use
  Company Number: US-ASTRAZENECA-2012SE82662

PATIENT
  Age: 59 Year
  Sex: Male

DRUGS (2)
  1. CRESTOR [Suspect]
     Route: 048
  2. TOPROL XL [Suspect]
     Route: 048

REACTIONS (2)
  - Bladder cancer [Unknown]
  - Haematuria [Unknown]
